FAERS Safety Report 7602225-0 (Version None)
Quarter: 2011Q3

REPORT INFORMATION
  Report Type: 
  Country: None (occurrence: None)
  Receive Date: 20110711
  Receipt Date: 20110707
  Transmission Date: 20111222
  Serious: Yes (Hospitalization)
  Sender: FDA-Public Use
  Company Number: BR-ABBOTT-10P-020-0692846-00

PATIENT
  Sex: Male
  Weight: 50 kg

DRUGS (2)
  1. LOPERAMIDE HYDROCHLORIDE [Concomitant]
     Indication: DYSENTERY
     Route: 048
     Dates: start: 20100101, end: 20101206
  2. HUMIRA [Suspect]
     Indication: CROHN'S DISEASE
     Route: 058
     Dates: start: 20100314

REACTIONS (6)
  - ABDOMINAL PAIN UPPER [None]
  - DIARRHOEA [None]
  - ABDOMINAL DISTENSION [None]
  - ASTHENIA [None]
  - DECREASED APPETITE [None]
  - WEIGHT DECREASED [None]
